FAERS Safety Report 6381087-6 (Version None)
Quarter: 2009Q3

REPORT INFORMATION
  Report Type: 
  Country: None (occurrence: None)
  Receive Date: 20090929
  Receipt Date: 20090922
  Transmission Date: 20100115
  Serious: Yes (Other)
  Sender: FDA-Public Use
  Company Number: US-JNJFOC-20090907038

PATIENT
  Age: 12 Year
  Sex: Male
  Weight: 48.54 kg

DRUGS (2)
  1. CHILDREN'S MOTRIN COLD BERRY ORAL [Suspect]
     Route: 048
  2. CHILDREN'S MOTRIN COLD BERRY ORAL [Suspect]
     Indication: NASOPHARYNGITIS
     Dosage: 2-3 TEASPOONS ONCE
     Route: 048

REACTIONS (1)
  - BLOOD URINE PRESENT [None]
